FAERS Safety Report 20887571 (Version 1)
Quarter: 2022Q2

REPORT INFORMATION
  Report Type: Spontaneous
  Country: NL (occurrence: NL)
  Receive Date: 20220528
  Receipt Date: 20220528
  Transmission Date: 20220720
  Serious: Yes (Other)
  Sender: FDA-Public Use
  Company Number: NL-LUPIN PHARMACEUTICALS INC.-2022-07564

PATIENT
  Age: 17 Year
  Sex: Female

DRUGS (2)
  1. DEXTROAMPHETAMINE [Suspect]
     Active Substance: DEXTROAMPHETAMINE
     Indication: Hypothalamo-pituitary disorder
     Dosage: 5 MILLIGRAM, QD
     Route: 065
  2. DEXTROAMPHETAMINE [Suspect]
     Active Substance: DEXTROAMPHETAMINE
     Indication: Obesity
     Dosage: 20 MILLIGRAM, QD
     Route: 065

REACTIONS (3)
  - Hypertension [Unknown]
  - Off label use [Unknown]
  - Drug ineffective for unapproved indication [Unknown]
